FAERS Safety Report 4701471-3 (Version None)
Quarter: 2005Q2

REPORT INFORMATION
  Report Type: 
  Country: None (occurrence: None)
  Receive Date: 20050628
  Receipt Date: 20050614
  Transmission Date: 20051028
  Serious: Yes (Other)
  Sender: FDA-Public Use
  Company Number: US-ROCHE-407881

PATIENT
  Age: 51 Year
  Sex: Female
  Weight: 40.8 kg

DRUGS (6)
  1. PEGASYS [Suspect]
     Indication: HEPATITIS C
     Dosage: ROUTE REPORTED AS INJECTION.
     Route: 050
     Dates: start: 20040604, end: 20050121
  2. COPEGUS [Suspect]
     Indication: HEPATITIS C
     Route: 048
     Dates: start: 20040604
  3. COPEGUS [Suspect]
     Dosage: DOSE ADJUSTED SEVERAL TIMES THROUGHOUT TREATMENT DUE TO NEUTROPENIA AND ANAEMIA.
     Route: 048
     Dates: end: 20050121
  4. FLOVENT [Concomitant]
  5. ALLEGRA [Concomitant]
  6. RESTORIL [Concomitant]
     Indication: INSOMNIA

REACTIONS (6)
  - ANAEMIA [None]
  - DISEASE RECURRENCE [None]
  - DYSPNOEA [None]
  - HEPATITIS C VIRUS [None]
  - NEUTROPENIA [None]
  - RAYNAUD'S PHENOMENON [None]
